FAERS Safety Report 10960748 (Version 3)
Quarter: 2015Q2

REPORT INFORMATION
  Report Type: Spontaneous
  Country: JP (occurrence: JP)
  Receive Date: 20150327
  Receipt Date: 20150413
  Transmission Date: 20150821
  Serious: Yes (Hospitalization)
  Sender: FDA-Public Use
  Company Number: JP-PFIZER INC-2015095460

PATIENT
  Age: 76 Year
  Sex: Female

DRUGS (3)
  1. FELBINAC [Concomitant]
     Active Substance: FELBINAC
     Indication: LUMBAR SPINAL STENOSIS
     Dosage: UNK, TAPE (INCLUDING POULTICE)
     Dates: start: 20150204
  2. MUCOSTA [Concomitant]
     Active Substance: REBAMIPIDE
     Indication: LUMBAR SPINAL STENOSIS
     Dosage: UNK
     Route: 048
     Dates: start: 20150204, end: 20150216
  3. CELECOX [Suspect]
     Active Substance: CELECOXIB
     Indication: LUMBAR SPINAL STENOSIS
     Dosage: 100 MG, 2X/DAY
     Route: 048
     Dates: start: 20150204, end: 20150216

REACTIONS (2)
  - Off label use [Unknown]
  - Drug eruption [Recovering/Resolving]

NARRATIVE: CASE EVENT DATE: 20150204
